FAERS Safety Report 21638563 (Version 1)
Quarter: 2022Q4

REPORT INFORMATION
  Report Type: Spontaneous
  Country: GB (occurrence: GB)
  Receive Date: 20221124
  Receipt Date: 20221124
  Transmission Date: 20230113
  Serious: Yes (Other)
  Sender: FDA-Public Use
  Company Number: GB-SLATE RUN PHARMACEUTICALS-22GB001419

PATIENT

DRUGS (5)
  1. AZITHROMYCIN [Suspect]
     Active Substance: AZITHROMYCIN
     Indication: Mycobacterium avium complex infection
     Dosage: UNK UNK, 3/WEEK
     Route: 048
  2. ETHAMBUTOL [Suspect]
     Active Substance: ETHAMBUTOL HYDROCHLORIDE
     Indication: Mycobacterium avium complex infection
     Dosage: UNK, 3/WEEK
     Route: 048
  3. RIFAMPIN [Suspect]
     Active Substance: RIFAMPIN
     Indication: Mycobacterium avium complex infection
     Dosage: UNK, 3/WEEK
     Route: 048
  4. UNSPECIFIED INGREDIENT [Concomitant]
     Active Substance: UNSPECIFIED INGREDIENT
     Indication: Hypertension
     Dosage: UNK
  5. UNSPECIFIED INGREDIENT [Concomitant]
     Active Substance: UNSPECIFIED INGREDIENT
     Indication: Poor peripheral circulation
     Dosage: UNK

REACTIONS (8)
  - Mycobacterium test positive [Unknown]
  - Decreased appetite [Unknown]
  - Cough [Unknown]
  - Productive cough [Unknown]
  - Off label use [Recovered/Resolved]
  - Nausea [Unknown]
  - Diarrhoea [Unknown]
  - Drug ineffective for unapproved indication [Unknown]
